FAERS Safety Report 5362158-X (Version None)
Quarter: 2007Q2

REPORT INFORMATION
  Report Type: 
  Country: None (occurrence: None)
  Receive Date: 20070530
  Receipt Date: 20070310
  Transmission Date: 20071010
  Serious: No
  Sender: FDA-Public Use
  Company Number: 2007PV031462

PATIENT
  Age: 61 Year
  Sex: Male
  Weight: 108.8633 kg

DRUGS (4)
  1. BYETTA [Suspect]
     Indication: DIABETES MELLITUS NON-INSULIN-DEPENDENT
     Dosage: 10 MCG;BID;SC ; 5 MCG;BID;SC
     Route: 058
     Dates: start: 20060101, end: 20070101
  2. BYETTA [Suspect]
     Indication: DIABETES MELLITUS NON-INSULIN-DEPENDENT
     Dosage: 10 MCG;BID;SC ; 5 MCG;BID;SC
     Route: 058
     Dates: start: 20070101
  3. METFORMIN HCL [Concomitant]
  4. GLYBURIDE [Concomitant]

REACTIONS (3)
  - BLOOD GLUCOSE INCREASED [None]
  - VISION BLURRED [None]
  - WEIGHT DECREASED [None]
